FAERS Safety Report 11150470 (Version 1)
Quarter: 2015Q2

REPORT INFORMATION
  Report Type: Report from Study
  Country: US (occurrence: US)
  Receive Date: 20150601
  Receipt Date: 20150601
  Transmission Date: 20150821
  Serious: Yes (Hospitalization, Other)
  Sender: FDA-Public Use
  Company Number: US-ABBVIE-15P-163-1398446-00

PATIENT
  Age: 51 Year
  Sex: Female

DRUGS (2)
  1. VIEKIRA PAK [Suspect]
     Active Substance: DASABUVIR\OMBITASVIR\PARITAPREVIR\RITONAVIR
     Indication: HEPATITIS C
     Dosage: TAKE PER MANUFACTURE DIRECTIONS
     Route: 048
     Dates: start: 20150505, end: 20150520
  2. CYCLOSPORINE. [Interacting]
     Active Substance: CYCLOSPORINE
     Indication: PRODUCT USED FOR UNKNOWN INDICATION
     Route: 065

REACTIONS (9)
  - Abdominal distension [Recovering/Resolving]
  - Abdominal pain [Recovering/Resolving]
  - Drug level increased [Recovering/Resolving]
  - Drug interaction [Recovering/Resolving]
  - Renal impairment [Unknown]
  - Hypertension [Recovering/Resolving]
  - Localised oedema [Recovering/Resolving]
  - Blood creatinine increased [Recovering/Resolving]
  - Hypotension [Recovering/Resolving]

NARRATIVE: CASE EVENT DATE: 20150515
